FAERS Safety Report 8204587-2 (Version None)
Quarter: 2012Q1

REPORT INFORMATION
  Report Type: 
  Country: None (occurrence: None)
  Receive Date: 20120313
  Receipt Date: 20120307
  Transmission Date: 20120608
  Serious: Yes (Hospitalization, Disabling, Other)
  Sender: FDA-Public Use
  Company Number: US-PFIZER INC-2003032737

PATIENT
  Sex: Female
  Weight: 81.633 kg

DRUGS (8)
  1. VITAMIN D [Concomitant]
     Dosage: 50000 IU, WEEKLY
  2. NARDIL [Suspect]
     Dosage: 15 MG, 6 TIMES DAILY
     Route: 048
  3. ALLEGRA [Concomitant]
     Dosage: UNK
  4. SEROQUEL [Suspect]
     Dosage: UNK
  5. NEXIUM [Concomitant]
     Dosage: UNK, 2X/DAY
  6. FISH OIL [Concomitant]
     Dosage: UNK
  7. XANAX [Suspect]
     Indication: GENERALISED ANXIETY DISORDER
     Dosage: 0.5 MG, 2X/DAY
     Route: 048
  8. XANAX [Suspect]
     Dosage: 0.5 MG, 4X/DAY
     Route: 048

REACTIONS (22)
  - WEIGHT INCREASED [None]
  - DEPRESSION [None]
  - DECREASED APPETITE [None]
  - IRRITABLE BOWEL SYNDROME [None]
  - PANIC DISORDER [None]
  - DRUG DEPENDENCE [None]
  - DRUG INEFFECTIVE [None]
  - BRONCHITIS [None]
  - SOMNOLENCE [None]
  - DYSPNOEA [None]
  - EAR INFECTION [None]
  - BLOOD POTASSIUM DECREASED [None]
  - MEMORY IMPAIRMENT [None]
  - POST-TRAUMATIC STRESS DISORDER [None]
  - NERVOUSNESS [None]
  - SUICIDAL IDEATION [None]
  - FEELING ABNORMAL [None]
  - WEIGHT DECREASED [None]
  - HYPERSOMNIA [None]
  - SINUS DISORDER [None]
  - DRUG ADMINISTRATION ERROR [None]
  - ABNORMAL DREAMS [None]
